FAERS Safety Report 19074989 (Version 1)
Quarter: 2021Q1

REPORT INFORMATION
  Report Type: Spontaneous
  Country: GB (occurrence: GB)
  Receive Date: 20210330
  Receipt Date: 20210330
  Transmission Date: 20210420
  Serious: Yes (Hospitalization, Other)
  Sender: FDA-Public Use
  Company Number: GB-ASTRAZENECA-2021A184546

PATIENT
  Age: 78 Year
  Sex: Female

DRUGS (2)
  1. IMFINZI [Suspect]
     Active Substance: DURVALUMAB
     Indication: NON-SMALL CELL LUNG CANCER STAGE III
     Route: 042
  2. PREDNISOLONE. [Concomitant]
     Active Substance: PREDNISOLONE
     Dosage: REDUCING DOSE

REACTIONS (7)
  - Nausea [Unknown]
  - Enterocolitis [Unknown]
  - Dyspnoea [Unknown]
  - Pneumonitis [Unknown]
  - Rash [Unknown]
  - Vomiting [Unknown]
  - Cough [Unknown]
